FAERS Safety Report 4847803-7 (Version None)
Quarter: 2005Q4

REPORT INFORMATION
  Report Type: 
  Country: None (occurrence: None)
  Receive Date: 20051205
  Receipt Date: 20051122
  Transmission Date: 20060501
  Serious: Yes (Other)
  Sender: FDA-Public Use
  Company Number: 2005160931

PATIENT
  Age: 4 Month

DRUGS (1)
  1. DAILY CARE (ZINC OXIDE) [Suspect]

REACTIONS (3)
  - CONTUSION [None]
  - ERYTHEMA [None]
  - THERMAL BURN [None]
